FAERS Safety Report 11859502 (Version 2)
Quarter: 2016Q1

REPORT INFORMATION
  Report Type: Report from Study
  Country: CZ (occurrence: CZ)
  Receive Date: 20151221
  Receipt Date: 20160129
  Transmission Date: 20160526
  Serious: Yes (Death, Hospitalization, Other)
  Sender: FDA-Public Use
  Company Number: CZ-BIOGEN-2015BI058775

PATIENT
  Age: 47 Year
  Sex: Female
  Weight: 68 kg

DRUGS (16)
  1. FAMPRIDINE [Suspect]
     Active Substance: DALFAMPRIDINE
     Indication: MULTIPLE SCLEROSIS
     Route: 048
     Dates: start: 20150318, end: 20150506
  2. CITALOPRAM [Concomitant]
     Active Substance: CITALOPRAM HYDROBROMIDE
     Indication: DEPRESSION
     Dates: start: 2010
  3. VITAMIN E [Concomitant]
     Active Substance: .ALPHA.-TOCOPHEROL
  4. HELICID [Concomitant]
  5. DALACIN [Concomitant]
     Active Substance: CLINDAMYCIN\CLINDAMYCIN PHOSPHATE
     Dates: start: 20150401, end: 20150428
  6. MEDROL [Concomitant]
     Active Substance: METHYLPREDNISOLONE
     Indication: MULTIPLE SCLEROSIS
     Dates: start: 2004
  7. BACLOFEN. [Concomitant]
     Active Substance: BACLOFEN
  8. DOXYBENE [Concomitant]
     Dates: start: 20150401, end: 20150428
  9. KALIUM CHLORATUM [Concomitant]
     Active Substance: POTASSIUM CHLORIDE
  10. PYRIDOXINE [Concomitant]
     Active Substance: PYRIDOXINE
  11. BETAFERON [Concomitant]
     Active Substance: INTERFERON BETA-1B
  12. VIGANTOL [Concomitant]
  13. FURON [Concomitant]
     Active Substance: FUROSEMIDE
  14. LOKREN [Concomitant]
     Active Substance: BETAXOLOL HYDROCHLORIDE
     Indication: HYPERTENSION
     Dates: start: 2000
  15. SIRDALUD [Concomitant]
     Active Substance: TIZANIDINE
  16. VALDOXAN [Concomitant]
     Active Substance: AGOMELATINE

REACTIONS (2)
  - Ovarian endometrioid carcinoma [Fatal]
  - Multiple sclerosis relapse [Recovered/Resolved with Sequelae]

NARRATIVE: CASE EVENT DATE: 20150429
